FAERS Safety Report 9606463 (Version 1)
Quarter: 2013Q4

REPORT INFORMATION
  Report Type: Spontaneous
  Country: US (occurrence: US)
  Receive Date: 20131008
  Receipt Date: 20131008
  Transmission Date: 20140711
  Serious: No
  Sender: FDA-Public Use
  Company Number: US-AMGEN-USASP2013055485

PATIENT
  Age: 64 Year
  Sex: Female

DRUGS (6)
  1. PROLIA [Suspect]
     Indication: OSTEOPOROSIS
     Dosage: UNK
     Route: 065
     Dates: start: 201208
  2. GABAPENTIN [Concomitant]
  3. METFORMIN [Concomitant]
  4. CALTRATE D                         /00944201/ [Concomitant]
  5. VITAMIN D                          /00318501/ [Concomitant]
     Dosage: 5000 IU, UNK
  6. VITAMINS                           /00067501/ [Concomitant]

REACTIONS (3)
  - Pain in jaw [Recovered/Resolved]
  - Pain [Recovered/Resolved]
  - Injection site pain [Recovered/Resolved]
